FAERS Safety Report 10038801 (Version 1)
Quarter: 2014Q1

REPORT INFORMATION
  Report Type: Spontaneous
  Country: US (occurrence: None)
  Receive Date: 20140306
  Receipt Date: 20140306
  Transmission Date: 20141002
  Serious: Yes (Hospitalization)
  Sender: FDA-Public Use
  Company Number: 163-21880-13052337

PATIENT
  Age: 72 Year
  Sex: Male
  Weight: 66.23 kg

DRUGS (7)
  1. REVLIMID [Suspect]
     Indication: PLASMA CELL MYELOMA
     Dosage: 5MG, 21 IN 28 D, PO
     Route: 048
     Dates: start: 201304
  2. MULTIVITAMINS (MULTIVITAMINS) [Concomitant]
  3. PANTOPRAZOLE (PANTOPRAZOLE) [Concomitant]
  4. AMLODIPINE (AMLODIPINE) [Concomitant]
  5. ACYCLOVIR (ACICLOVIR) (ACICLOVIR) [Concomitant]
  6. URSODIOL (URSODEOXYCHOLIC ACID) [Concomitant]
  7. CITRACAL + D (CITRACAL + D) [Concomitant]

REACTIONS (1)
  - Viral infection [None]
